FAERS Safety Report 4904246-5 (Version None)
Quarter: 2006Q1

REPORT INFORMATION
  Report Type: 
  Country: None (occurrence: None)
  Receive Date: 20060208
  Receipt Date: 20050816
  Transmission Date: 20060701
  Serious: No
  Sender: FDA-Public Use
  Company Number: US-GLAXOSMITHKLINE-A0570412A

PATIENT
  Age: 37 Year
  Sex: Female

DRUGS (9)
  1. PAXIL [Suspect]
     Indication: PANIC DISORDER
     Dosage: 25MG SEE DOSAGE TEXT
     Route: 048
  2. PAXIL CR [Suspect]
     Dosage: 25MG PER DAY
     Route: 048
  3. PAROXETINE HCL [Suspect]
     Route: 048
  4. DEPAKOTE [Concomitant]
  5. KLONOPIN [Concomitant]
  6. TOPROL [Concomitant]
  7. ORAL CONTRACEPTIVES [Concomitant]
  8. SYNTHROID [Concomitant]
  9. PRILOSEC [Concomitant]

REACTIONS (3)
  - DRUG INEFFECTIVE [None]
  - FATIGUE [None]
  - INSOMNIA [None]
